FAERS Safety Report 21638643 (Version 1)
Quarter: 2022Q4

REPORT INFORMATION
  Report Type: Report from Study
  Country: US (occurrence: US)
  Receive Date: 20221124
  Receipt Date: 20221124
  Transmission Date: 20230113
  Serious: No
  Sender: FDA-Public Use
  Company Number: US-ABBVIE-4164379

PATIENT
  Sex: Female

DRUGS (4)
  1. HUMIRA [Suspect]
     Active Substance: ADALIMUMAB
     Indication: Rheumatoid arthritis
     Dosage: CITRATE FREE
     Route: 058
  2. Moderna [Concomitant]
     Indication: COVID-19 immunisation
     Dosage: ONE, ONE, ONCE 1ST DOSE
     Route: 030
     Dates: start: 20210401, end: 20210401
  3. Moderna [Concomitant]
     Indication: COVID-19 immunisation
     Dosage: ONE, ONE, ONCE 2ND DOSE
     Route: 030
     Dates: start: 20210601, end: 20210601
  4. Moderna [Concomitant]
     Indication: COVID-19 immunisation
     Dosage: ONE, ONE, ONCE BOOSTER DOSE
     Route: 030
     Dates: start: 20221012, end: 20221012

REACTIONS (2)
  - Arthropathy [Unknown]
  - COVID-19 [Unknown]
